FAERS Safety Report 5131808-5 (Version None)
Quarter: 2006Q4

REPORT INFORMATION
  Report Type: 
  Country: None (occurrence: None)
  Receive Date: 20061016
  Receipt Date: 20061002
  Transmission Date: 20070319
  Serious: Yes (Hospitalization)
  Sender: FDA-Public Use
  Company Number: 2006117818

PATIENT
  Age: 32 Year
  Sex: Female

DRUGS (8)
  1. NEURONTIN [Suspect]
     Indication: PIRIFORMIS SYNDROME
     Dosage: 800 MG (400 MG, 2 IN 1 D), ORAL
     Route: 048
     Dates: start: 20060901
  2. AMITRIPTYLINE HCL [Concomitant]
  3. DIPYRONE (METAMIZOLE SODIUM) [Concomitant]
  4. AMPLICITIL (CHLORPROMAZINE) [Concomitant]
  5. METADON (METHADONE HYDROCHLORIDE) [Concomitant]
  6. RANITIDINE [Concomitant]
  7. TRILEPTAL [Concomitant]
  8. VITAMIN B COMPLEX (CALCIUM PANTOTHENATE, NICOTINAMIDE, PYRIDOXINE HYDR [Concomitant]

REACTIONS (10)
  - ACNE [None]
  - DIZZINESS [None]
  - DYSSTASIA [None]
  - FALL [None]
  - MALAISE [None]
  - MUSCULAR WEAKNESS [None]
  - PAIN [None]
  - RASH [None]
  - SEDATION [None]
  - TREMOR [None]
